FAERS Safety Report 17847142 (Version 3)
Quarter: 2020Q3

REPORT INFORMATION
  Report Type: Spontaneous
  Country: US (occurrence: US)
  Receive Date: 20200601
  Receipt Date: 20200730
  Transmission Date: 20201103
  Serious: Yes (Other)
  Sender: FDA-Public Use
  Company Number: US-PFIZER INC-2020205359

PATIENT
  Age: 82 Year
  Sex: Male
  Weight: 73.94 kg

DRUGS (13)
  1. MIRABEGRON [Concomitant]
     Active Substance: MIRABEGRON
     Indication: PROSTATIC DISORDER
     Dosage: 25 MG ONCE AT BEDTIME
  2. METOPROLOL TARTRATE. [Concomitant]
     Active Substance: METOPROLOL TARTRATE
     Indication: CARDIAC DISORDER
     Dosage: ONE 25 MG HALF TABLET, TWICE A DAY; ONE IN THE
  3. VYNDAMAX [Concomitant]
     Active Substance: TAFAMIDIS
     Indication: CARDIAC DISORDER
     Dosage: 61 MG, 1X/DAY (61 MG PURPLE/WINE COLORED CAPSULE ONE A DAY IN THE MORNING)
     Route: 065
  4. ACETYLSALICYLIC ACID [Concomitant]
     Active Substance: ASPIRIN
     Indication: CARDIOVASCULAR EVENT PROPHYLAXIS
     Dosage: 81 MG, ONCE IN THE MORNING
  5. PROTONIX [Concomitant]
     Active Substance: PANTOPRAZOLE SODIUM
     Indication: ABDOMINAL DISCOMFORT
     Dosage: 40 MG ONCE IN THE MORNING
  6. DEMADEX [Concomitant]
     Active Substance: TORSEMIDE
     Indication: PRODUCT USED FOR UNKNOWN INDICATION
     Dosage: 20 MG ONCE IN THE MORNING
  7. FERROUS SULFATE. [Concomitant]
     Active Substance: FERROUS SULFATE
     Indication: MINERAL SUPPLEMENTATION
     Dosage: 325 MG AND 65 MG ONE IN THE MORNING
  8. PRAVASTATIN. [Concomitant]
     Active Substance: PRAVASTATIN
     Indication: BLOOD CHOLESTEROL
     Dosage: 40 MG ONCE IN THE EVENING
  9. APIXABAN [Suspect]
     Active Substance: APIXABAN
     Indication: EMBOLISM VENOUS
     Dosage: 2.5 MILLIGRAM, BID
     Route: 065
  10. TAPAZOLE [Concomitant]
     Active Substance: METHIMAZOLE
     Indication: THYROID DISORDER
     Dosage: 5 MG
  11. AMIODARONE [Concomitant]
     Active Substance: AMIODARONE
     Indication: PRODUCT USED FOR UNKNOWN INDICATION
     Dosage: 200 MG TOLD TO CUT SO CAN TAKE IT THREE TIMES A DAY,
  12. PROSCAR [Concomitant]
     Active Substance: FINASTERIDE
     Indication: PROSTATIC DISORDER
     Dosage: 5 MG IN EVENING
  13. MAG OXIDE [Concomitant]
     Active Substance: MAGNESIUM OXIDE
     Indication: BONE DISORDER
     Dosage: 400 MG ONCE IN THE EVENING

REACTIONS (1)
  - Amyloidosis [Unknown]
